FAERS Safety Report 19274292 (Version 2)
Quarter: 2021Q2

REPORT INFORMATION
  Report Type: Spontaneous
  Country: US (occurrence: US)
  Receive Date: 20210519
  Receipt Date: 20210528
  Transmission Date: 20210717
  Serious: Yes (Other)
  Sender: FDA-Public Use
  Company Number: US-ELI_LILLY_AND_COMPANY-US202105008228

PATIENT
  Sex: Female

DRUGS (2)
  1. FORTEO [Suspect]
     Active Substance: TERIPARATIDE
     Dosage: UNK UNK, UNKNOWN
     Route: 058
  2. FORTEO [Suspect]
     Active Substance: TERIPARATIDE
     Indication: PRODUCT USED FOR UNKNOWN INDICATION
     Dosage: UNK UNK, UNKNOWN
     Route: 058
     Dates: start: 202001

REACTIONS (7)
  - Renal disorder [Unknown]
  - Glomerular filtration rate decreased [Unknown]
  - Renal atrophy [Unknown]
  - Calcium metabolism disorder [Unknown]
  - Injury associated with device [Recovered/Resolved]
  - Blood parathyroid hormone increased [Unknown]
  - Haemorrhage [Recovered/Resolved]

NARRATIVE: CASE EVENT DATE: 20210518
